FAERS Safety Report 5498132-2 (Version None)
Quarter: 2007Q4

REPORT INFORMATION
  Report Type: 
  Country: None (occurrence: None)
  Receive Date: 20071025
  Receipt Date: 20071017
  Transmission Date: 20080405
  Serious: Yes (Hospitalization)
  Sender: FDA-Public Use
  Company Number: DE-BOEHRINGER INGELHEIM PHARMACEUTICALS, INC.-2007-DE-05264DE

PATIENT
  Sex: Male
  Weight: 59 kg

DRUGS (4)
  1. PRAMIPEXOLE DIHYDROCHLORIDE [Suspect]
  2. DIOVAN HCT [Concomitant]
     Indication: HYPERTENSION
     Dosage: STRENGTH / DAILY DOSE: 160/12,5 MG
     Route: 048
     Dates: start: 19970101
  3. DILTIAZEM [Concomitant]
     Indication: HYPERTENSION
     Route: 048
     Dates: start: 19970101
  4. MOXONIDIN [Concomitant]
     Indication: HYPERTENSION
     Route: 048
     Dates: start: 20000101

REACTIONS (3)
  - ANURIA [None]
  - FALL [None]
  - FEMORAL NECK FRACTURE [None]
